FAERS Safety Report 5854712-3 (Version None)
Quarter: 2008Q3

REPORT INFORMATION
  Report Type: 
  Country: None (occurrence: None)
  Receive Date: 20080822
  Receipt Date: 20080812
  Transmission Date: 20090109
  Serious: Yes (Hospitalization)
  Sender: FDA-Public Use
  Company Number: FR-PFIZER INC-2008067950

PATIENT
  Sex: Female

DRUGS (3)
  1. SULFASALAZINE [Suspect]
     Route: 048
  2. PAROXETINE HCL [Suspect]
     Route: 048
  3. KETOPROFEN [Suspect]
     Route: 048

REACTIONS (1)
  - ECTOPIC PREGNANCY [None]
